FAERS Safety Report 16282614 (Version 1)
Quarter: 2019Q2

REPORT INFORMATION
  Report Type: Spontaneous
  Country: CN (occurrence: CN)
  Receive Date: 20190507
  Receipt Date: 20190507
  Transmission Date: 20190711
  Serious: Yes (Hospitalization, Other)
  Sender: FDA-Public Use
  Company Number: CN-BAXTER-2019BAX008853

PATIENT
  Age: 48 Year
  Sex: Female
  Weight: 68 kg

DRUGS (15)
  1. 5% GLUCOSE  INJECTION [Suspect]
     Active Substance: DEXTROSE
     Indication: MEDICATION DILUTION
     Dosage: CYCLOPHOSPHAMIDE 1 G + 5 % GS 500 ML
     Route: 042
     Dates: start: 20190414, end: 20190414
  2. TESULOID [Suspect]
     Active Substance: TECHNETIUM TC-99M SULFUR COLLOID
     Dosage: PACLITAXEL 315 MG + NS 500 ML
     Route: 042
     Dates: start: 20190415, end: 20190415
  3. ENDOXAN [Suspect]
     Active Substance: CYCLOPHOSPHAMIDE
     Indication: BREAST CANCER FEMALE
     Dosage: DOSAGE FORM: INJECTION
     Route: 042
  4. AIDASHENG [Suspect]
     Active Substance: EPIRUBICIN HYDROCHLORIDE
     Dosage: DOSAGE FORM: POWDER INJECTION, EPIRUBICIN 140 MG + 5% GS 500 ML IVGTT
     Route: 041
     Dates: start: 20190414, end: 20190414
  5. AIDASHENG [Suspect]
     Active Substance: EPIRUBICIN HYDROCHLORIDE
     Indication: BREAST CANCER FEMALE
     Dosage: DOSAGE FORM: POWDER INJECTION
     Route: 041
  6. AIDASHENG [Suspect]
     Active Substance: EPIRUBICIN HYDROCHLORIDE
     Dosage: DOSAGE FORM: POWDER INJECTION, EPIRUBICIN + 5 % GS, DOSE RE-INTRODUCED
     Route: 041
  7. 0.9% SODIUM CHLORIDE INJECTION [Suspect]
     Active Substance: SODIUM CHLORIDE
     Indication: MEDICATION DILUTION
     Dosage: PACLITAXEL 315 MG + NS 500 ML
     Route: 042
     Dates: start: 20190414, end: 20190414
  8. TESULOID [Suspect]
     Active Substance: TECHNETIUM TC-99M SULFUR COLLOID
     Indication: BREAST CANCER FEMALE
     Route: 042
  9. ENDOXAN [Suspect]
     Active Substance: CYCLOPHOSPHAMIDE
     Dosage: DOSAGE FORM: INJECTION, CYCLOPHOSPHAMIDE 1 G + 5 % GS 500 ML
     Route: 042
     Dates: start: 20190414, end: 20190414
  10. 5% GLUCOSE  INJECTION [Suspect]
     Active Substance: DEXTROSE
     Dosage: CYCLOPHOSPHAMIDE + 5 % GS, DOSE RE-INTRODUCED
     Route: 042
  11. 5% GLUCOSE  INJECTION [Suspect]
     Active Substance: DEXTROSE
     Dosage: EPIRUBICIN + 5 % GS, DOSE RE-INTRODUCED
     Route: 041
  12. 0.9% SODIUM CHLORIDE INJECTION [Suspect]
     Active Substance: SODIUM CHLORIDE
     Dosage: PACLITAXEL + NS, DOSE RE-INTRODUCED
     Route: 042
  13. ENDOXAN [Suspect]
     Active Substance: CYCLOPHOSPHAMIDE
     Dosage: DOSAGE FORM: INJECTION, DOSE RE-INTRODUCED, CYCLOPHOSPHAMIDE + 5 % GS
     Route: 042
  14. TESULOID [Suspect]
     Active Substance: TECHNETIUM TC-99M SULFUR COLLOID
     Dosage: PACLITAXEL + NS , DOSE RE-INTRODUCED
     Route: 042
  15. 5% GLUCOSE  INJECTION [Suspect]
     Active Substance: DEXTROSE
     Dosage: EPIRUBICIN 140 MG + 5 % GS 500 ML IVGTT
     Route: 041
     Dates: start: 20190414, end: 20190414

REACTIONS (2)
  - Pyrexia [Unknown]
  - Leukopenia [Recovering/Resolving]

NARRATIVE: CASE EVENT DATE: 20190421
